FAERS Safety Report 25340611 (Version 1)
Quarter: 2025Q2

REPORT INFORMATION
  Report Type: Spontaneous
  Country: CN (occurrence: CN)
  Receive Date: 20250521
  Receipt Date: 20250521
  Transmission Date: 20250717
  Serious: Yes (Other)
  Sender: SANOFI AVENTIS
  Company Number: CN-SA-2025SA142327

PATIENT
  Age: 59 Year
  Sex: Male
  Weight: 62 kg

DRUGS (2)
  1. TOUJEO [Suspect]
     Active Substance: INSULIN GLARGINE
     Indication: Blood glucose increased
     Dosage: 20 IU, QD
     Route: 058
     Dates: start: 20250424, end: 20250428
  2. TOUJEO [Suspect]
     Active Substance: INSULIN GLARGINE
     Dosage: 24 IU, QD
     Route: 058
     Dates: start: 20250428, end: 20250429

REACTIONS (4)
  - Injection site papule [Recovering/Resolving]
  - Nausea [Recovering/Resolving]
  - Asphyxia [Recovering/Resolving]
  - Pallor [Unknown]

NARRATIVE: CASE EVENT DATE: 20250429
